FAERS Safety Report 21139246 (Version 1)
Quarter: 2022Q3

REPORT INFORMATION
  Report Type: Spontaneous
  Country: US (occurrence: None)
  Receive Date: 20220727
  Receipt Date: 20220727
  Transmission Date: 20221026
  Serious: Yes (Hospitalization)
  Sender: FDA-Public Use
  Company Number: None

PATIENT
  Age: 62 Year
  Sex: Female

DRUGS (1)
  1. LENVIMA [Suspect]
     Active Substance: LENVATINIB
     Indication: Endometrial cancer
     Dosage: FREQUENCY : DAILY;?
     Route: 048
     Dates: start: 20220622

REACTIONS (5)
  - Nausea [None]
  - Vomiting [None]
  - Decreased appetite [None]
  - Mouth ulceration [None]
  - Dehydration [None]

NARRATIVE: CASE EVENT DATE: 20220721
